FAERS Safety Report 21365371 (Version 1)
Quarter: 2022Q3

REPORT INFORMATION
  Report Type: Spontaneous
  Country: US (occurrence: None)
  Receive Date: 20220922
  Receipt Date: 20220922
  Transmission Date: 20221026
  Serious: Yes (Hospitalization)
  Sender: FDA-Public Use
  Company Number: None

PATIENT
  Sex: Female
  Weight: 72.4 kg

DRUGS (1)
  1. AVELUMAB [Suspect]
     Active Substance: AVELUMAB
     Dates: start: 20220824

REACTIONS (4)
  - Abdominal pain [None]
  - Nausea [None]
  - Body temperature increased [None]
  - Disease progression [None]

NARRATIVE: CASE EVENT DATE: 20220901
